FAERS Safety Report 25698110 (Version 1)
Quarter: 2025Q3

REPORT INFORMATION
  Report Type: Spontaneous
  Country: US (occurrence: US)
  Receive Date: 20250819
  Receipt Date: 20250819
  Transmission Date: 20251021
  Serious: Yes (Other)
  Sender: ALEXION PHARMACEUTICALS
  Company Number: US-AstraZeneca-CH-00932175A

PATIENT
  Age: 54 Year
  Sex: Female
  Weight: 53.977 kg

DRUGS (2)
  1. FARXIGA [Suspect]
     Active Substance: DAPAGLIFLOZIN PROPANEDIOL
     Indication: Diabetes mellitus
     Dosage: 5 MILLIGRAM, EVERY MORNING
     Dates: start: 20240513, end: 20250701
  2. JARDIANCE [Concomitant]
     Active Substance: EMPAGLIFLOZIN
     Route: 065

REACTIONS (8)
  - Dry mouth [Recovering/Resolving]
  - Oral infection [Recovering/Resolving]
  - Eczema [Recovering/Resolving]
  - Psoriasis [Recovering/Resolving]
  - Trichorrhexis [Recovering/Resolving]
  - Dyspnoea [Recovering/Resolving]
  - Dysphagia [Unknown]
  - Emotional distress [Unknown]

NARRATIVE: CASE EVENT DATE: 20240801
